FAERS Safety Report 15613259 (Version 1)
Quarter: 2018Q4

REPORT INFORMATION
  Report Type: Spontaneous
  Country: US (occurrence: US)
  Receive Date: 20181108
  Receipt Date: 20181108
  Transmission Date: 20190205
  Serious: No
  Sender: FDA-Public Use
  Company Number: None

PATIENT
  Age: 62 Year
  Sex: Female

DRUGS (1)
  1. BOTOX [Suspect]
     Active Substance: ONABOTULINUMTOXINA
     Dosage: ?          OTHER STRENGTH:200 UNITS;OTHER DOSE:200 UNITS;OTHER FREQUENCY:OTHER;?
     Route: 030
     Dates: start: 201808

REACTIONS (8)
  - Musculoskeletal pain [None]
  - Vomiting [None]
  - Migraine [None]
  - Gait inability [None]
  - Perfume sensitivity [None]
  - Nausea [None]
  - Blindness transient [None]
  - Diarrhoea [None]

NARRATIVE: CASE EVENT DATE: 20180813
